FAERS Safety Report 10152782 (Version 1)
Quarter: 2014Q2

REPORT INFORMATION
  Report Type: Spontaneous
  Country: US (occurrence: None)
  Receive Date: 20140502
  Receipt Date: 20140502
  Transmission Date: 20141212
  Serious: Yes (Hospitalization)
  Sender: FDA-Public Use
  Company Number: None

PATIENT
  Age: 40 Year
  Sex: Female
  Weight: 55 kg

DRUGS (2)
  1. BRINTELLIX [Suspect]
     Indication: DEPRESSION
     Dosage: 1 TABLET
     Route: 048
     Dates: start: 20140416, end: 20140501
  2. SYNTHROID [Concomitant]

REACTIONS (4)
  - Acute myocardial infarction [None]
  - Hypertension [None]
  - Headache [None]
  - Nausea [None]
